FAERS Safety Report 10031552 (Version 2)
Quarter: 2014Q1

REPORT INFORMATION
  Report Type: Spontaneous
  Country: US (occurrence: US)
  Receive Date: 20140324
  Receipt Date: 20140326
  Transmission Date: 20141002
  Serious: No
  Sender: FDA-Public Use
  Company Number: US-009507513-1403USA009925

PATIENT
  Sex: 0
  Weight: 82.54 kg

DRUGS (1)
  1. IMPLANON [Suspect]
     Dosage: IMPLANON ON UNSPECIFIED ARM
     Route: 059
     Dates: start: 20120815

REACTIONS (3)
  - Injury [Unknown]
  - Device breakage [Unknown]
  - No adverse event [Unknown]
